FAERS Safety Report 18435293 (Version 3)
Quarter: 2021Q3

REPORT INFORMATION
  Report Type: Spontaneous
  Country: US (occurrence: US)
  Receive Date: 20201027
  Receipt Date: 20210818
  Transmission Date: 20211014
  Serious: No
  Sender: FDA-Public Use
  Company Number: US-SA-2020SA302112

PATIENT
  Age: 74 Year
  Sex: Male

DRUGS (2)
  1. DUPIXENT [Suspect]
     Active Substance: DUPILUMAB
     Indication: DERMATITIS ATOPIC
     Dosage: 300 MG, QOW
     Route: 058
     Dates: start: 20201015
  2. DUPIXENT [Suspect]
     Active Substance: DUPILUMAB
     Indication: ECZEMA

REACTIONS (7)
  - Joint swelling [Unknown]
  - Oedema [Unknown]
  - Peripheral swelling [Unknown]
  - Dizziness [Unknown]
  - Injection site swelling [Unknown]
  - Dermatitis atopic [Unknown]
  - Unevaluable event [Recovered/Resolved]

NARRATIVE: CASE EVENT DATE: 2020
